FAERS Safety Report 6838856-5 (Version None)
Quarter: 2010Q3

REPORT INFORMATION
  Report Type: 
  Country: None (occurrence: None)
  Receive Date: 20100713
  Receipt Date: 20070810
  Transmission Date: 20110219
  Serious: No
  Sender: FDA-Public Use
  Company Number: US-PFIZER INC-2007035629

PATIENT
  Sex: Female
  Weight: 103.42 kg

DRUGS (9)
  1. CHANTIX [Suspect]
     Indication: TOBACCO USER
     Dates: start: 20070416, end: 20070425
  2. CYMBALTA [Concomitant]
     Indication: DEPRESSION
  3. CYMBALTA [Concomitant]
     Indication: ANXIETY
  4. TIOTROPIUM BROMIDE [Concomitant]
  5. BUDESONIDE [Concomitant]
  6. LOTREL [Concomitant]
  7. SOMA [Concomitant]
     Dosage: 2 TABLETS
  8. OMEPRAZOLE [Concomitant]
  9. DRIXORAL [Concomitant]

REACTIONS (3)
  - AGITATION [None]
  - ANXIETY [None]
  - NERVOUSNESS [None]
